FAERS Safety Report 9175256 (Version 1)
Quarter: 2013Q1

REPORT INFORMATION
  Report Type: Spontaneous
  Country: US (occurrence: US)
  Receive Date: 20130320
  Receipt Date: 20130320
  Transmission Date: 20140127
  Serious: Yes (Hospitalization)
  Sender: FDA-Public Use
  Company Number: US-ENDO PHARMACEUTICALS INC.-HCDA20130068

PATIENT
  Sex: Female
  Weight: 66.28 kg

DRUGS (1)
  1. HYDROCODONE/ACETAMINOPHEN [Suspect]
     Indication: PAIN
     Dosage: UNKNOWN
     Route: 048
     Dates: start: 2012

REACTIONS (3)
  - Blood pressure increased [Recovered/Resolved]
  - Amnesia [Not Recovered/Not Resolved]
  - Liver disorder [Unknown]
